FAERS Safety Report 16682454 (Version 1)
Quarter: 2019Q3

REPORT INFORMATION
  Report Type: Spontaneous
  Country: US (occurrence: US)
  Receive Date: 20190808
  Receipt Date: 20190808
  Transmission Date: 20191004
  Serious: No
  Sender: FDA-Public Use
  Company Number: US-BAYER-2019-146789

PATIENT
  Weight: 80.73 kg

DRUGS (2)
  1. LYRICA [Concomitant]
     Active Substance: PREGABALIN
     Indication: CENTRAL NERVOUS SYSTEM LESION
     Dosage: 200 MG, TID (TAKE 200 MG BY MOUTH 3 (THREE) TIMES DAILY FOR 90 DAYS)
     Route: 048
     Dates: start: 20190730
  2. MIRALAX [Suspect]
     Active Substance: POLYETHYLENE GLYCOL 3350
     Dosage: UNK

REACTIONS (1)
  - Drug hypersensitivity [Unknown]
